FAERS Safety Report 24169207 (Version 2)
Quarter: 2024Q4

REPORT INFORMATION
  Report Type: Spontaneous
  Country: US (occurrence: US)
  Receive Date: 20240802
  Receipt Date: 20241219
  Transmission Date: 20250115
  Serious: Yes (Other)
  Sender: CSL BEHRING
  Company Number: US-BEH-2024176291

PATIENT
  Age: 61 Year
  Sex: Female
  Weight: 40.816 kg

DRUGS (9)
  1. HIZENTRA [Suspect]
     Active Substance: HUMAN IMMUNOGLOBULIN G
     Indication: Primary immunodeficiency syndrome
     Dosage: UNK
     Route: 065
     Dates: start: 202406, end: 202408
  2. PRIVIGEN [Suspect]
     Active Substance: HUMAN IMMUNOGLOBULIN G
     Indication: Primary immunodeficiency syndrome
     Dosage: UNK
     Route: 065
  3. FLECAINIDE ACETATE [Concomitant]
     Active Substance: FLECAINIDE ACETATE
     Dosage: UNK, BID
  4. ASPIRIN [Concomitant]
     Active Substance: ASPIRIN
     Dosage: 81 MG, QD
  5. LEVOTHYROXINE SODIUM [Concomitant]
     Active Substance: LEVOTHYROXINE SODIUM
     Dosage: UNK UNK, QD
  6. ADVIL COLD AND SINUS [Concomitant]
     Active Substance: IBUPROFEN\PSEUDOEPHEDRINE HYDROCHLORIDE
  7. ADVIL SINUS CONGESTION AND PAIN [Concomitant]
     Active Substance: IBUPROFEN\PHENYLEPHRINE HYDROCHLORIDE
  8. IBUPROFEN [Concomitant]
     Active Substance: IBUPROFEN
  9. TYLENOL [Concomitant]
     Active Substance: ACETAMINOPHEN

REACTIONS (34)
  - Atrial fibrillation [Unknown]
  - Rheumatoid arthritis [Unknown]
  - Sjogren^s syndrome [Unknown]
  - Loss of consciousness [Unknown]
  - Chromaturia [Unknown]
  - Renal pain [Unknown]
  - Pain in extremity [Unknown]
  - Dizziness [Unknown]
  - Headache [Not Recovered/Not Resolved]
  - Chills [Unknown]
  - Feeling cold [Unknown]
  - Palpitations [Unknown]
  - Dyspnoea [Unknown]
  - Cardiac disorder [Unknown]
  - Tremor [Unknown]
  - Vision blurred [Unknown]
  - Dizziness [Unknown]
  - Hypoaesthesia [Unknown]
  - Arthralgia [Unknown]
  - Neck pain [Unknown]
  - Pain [Unknown]
  - Abdominal distension [Not Recovered/Not Resolved]
  - Pruritus [Unknown]
  - Nasal congestion [Unknown]
  - Toothache [Unknown]
  - Abdominal pain [Unknown]
  - Thyroid disorder [Unknown]
  - Dry skin [Unknown]
  - Dehydration [Unknown]
  - Weight decreased [Unknown]
  - Decreased appetite [Unknown]
  - Pyrexia [Unknown]
  - Cold sweat [Unknown]
  - Arthralgia [Unknown]
